FAERS Safety Report 25851532 (Version 1)
Quarter: 2025Q3

REPORT INFORMATION
  Report Type: Report from Study
  Country: US (occurrence: US)
  Receive Date: 20250926
  Receipt Date: 20250926
  Transmission Date: 20251021
  Serious: Yes (Other)
  Sender: MYLAN
  Company Number: US-MYLANLABS-2025M1081240

PATIENT
  Age: 70 Year
  Sex: Male
  Weight: 70.58 kg

DRUGS (8)
  1. YUPELRI [Suspect]
     Active Substance: REVEFENACIN
     Indication: Chronic obstructive pulmonary disease
     Dosage: 175 PER 3 MICROGRAM PER MILLILITRE, QD (ONCE DAILY VIA NEBULIZER)
     Dates: start: 20250903, end: 20250915
  2. YUPELRI [Suspect]
     Active Substance: REVEFENACIN
     Dosage: 175 PER 3 MICROGRAM PER MILLILITRE, QD (ONCE DAILY VIA NEBULIZER)
     Route: 065
     Dates: start: 20250903, end: 20250915
  3. YUPELRI [Suspect]
     Active Substance: REVEFENACIN
     Dosage: 175 PER 3 MICROGRAM PER MILLILITRE, QD (ONCE DAILY VIA NEBULIZER)
     Route: 065
     Dates: start: 20250903, end: 20250915
  4. YUPELRI [Suspect]
     Active Substance: REVEFENACIN
     Dosage: 175 PER 3 MICROGRAM PER MILLILITRE, QD (ONCE DAILY VIA NEBULIZER)
     Dates: start: 20250903, end: 20250915
  5. ALBUTEROL SULFATE [Concomitant]
     Active Substance: ALBUTEROL SULFATE
  6. ALBUTEROL SULFATE [Concomitant]
     Active Substance: ALBUTEROL SULFATE
     Route: 065
  7. ALBUTEROL SULFATE [Concomitant]
     Active Substance: ALBUTEROL SULFATE
     Route: 065
  8. ALBUTEROL SULFATE [Concomitant]
     Active Substance: ALBUTEROL SULFATE

REACTIONS (3)
  - Respiration abnormal [Recovered/Resolved]
  - Chest discomfort [Recovered/Resolved]
  - Asthenia [Recovered/Resolved]

NARRATIVE: CASE EVENT DATE: 20250903
